FAERS Safety Report 20683947 (Version 1)
Quarter: 2022Q2

REPORT INFORMATION
  Report Type: Spontaneous
  Country: GB (occurrence: GB)
  Receive Date: 20220407
  Receipt Date: 20220407
  Transmission Date: 20220720
  Serious: Yes (Other)
  Sender: FDA-Public Use
  Company Number: GB-MHRA-MED-202204011433102450-02N9V

PATIENT
  Age: 46 Year
  Sex: Male
  Weight: 63 kg

DRUGS (2)
  1. CLARITHROMYCIN [Suspect]
     Active Substance: CLARITHROMYCIN
     Indication: Sinusitis
     Dosage: 500 MILLIGRAM, BID (500MG TWICE A DAY)
     Dates: start: 20220307, end: 20220310
  2. FLUOXETINE [Concomitant]
     Active Substance: FLUOXETINE HYDROCHLORIDE
     Indication: Depression
     Dosage: UNK
     Dates: start: 20050201

REACTIONS (3)
  - Depression suicidal [Recovered/Resolved]
  - Feeling of despair [Unknown]
  - Anxiety [Unknown]

NARRATIVE: CASE EVENT DATE: 20220309
